FAERS Safety Report 4609793-1 (Version None)
Quarter: 2005Q1

REPORT INFORMATION
  Report Type: 
  Country: None (occurrence: None)
  Receive Date: 20050311
  Receipt Date: 20050228
  Transmission Date: 20050727
  Serious: Yes (Other)
  Sender: FDA-Public Use
  Company Number: GXKR2005GB00676

PATIENT
  Age: 49 Year
  Sex: Male

DRUGS (7)
  1. AMLODIPINE [Suspect]
     Dosage: 20 MG,
  2. DILTIAZEM (NGX) (DILTIAZEM) [Suspect]
     Dosage: 240 MG,
  3. ATENOLOL [Suspect]
     Indication: HYPERTENSION
     Dosage: 200 MG,
  4. ENALAPRIL (NGX) (ENALAPRIL MALEATE) [Suspect]
     Indication: HYPERTENSION
     Dosage: 60 MG,
  5. FLUPHENAZINE DECANOATE [Concomitant]
  6. PROCYCLIDINE HYDROCHLORIDE 2MG TAB [Concomitant]
  7. TEMAZEPAM [Concomitant]

REACTIONS (4)
  - BLOOD PRESSURE INADEQUATELY CONTROLLED [None]
  - GINGIVAL BLEEDING [None]
  - GINGIVAL HYPERTROPHY [None]
  - RENAL IMPAIRMENT [None]
